FAERS Safety Report 4521808-8 (Version None)
Quarter: 2004Q4

REPORT INFORMATION
  Report Type: 
  Country: None (occurrence: None)
  Receive Date: 20041206
  Receipt Date: 20041118
  Transmission Date: 20050328
  Serious: Yes (Death, Hospitalization)
  Sender: FDA-Public Use
  Company Number: US-JNJFOC-20041105220

PATIENT
  Age: 12 Month
  Sex: Male

DRUGS (1)
  1. TYLENOL [Suspect]
     Indication: PYREXIA

REACTIONS (3)
  - ACCIDENTAL OVERDOSE [None]
  - DRUG TOXICITY [None]
  - HEPATIC NECROSIS [None]
